FAERS Safety Report 5427962-8 (Version None)
Quarter: 2007Q3

REPORT INFORMATION
  Report Type: 
  Country: None (occurrence: None)
  Receive Date: 20070731
  Receipt Date: 20070521
  Transmission Date: 20080115
  Serious: No
  Sender: FDA-Public Use
  Company Number: US200705005542

PATIENT
  Age: 49 Year
  Sex: Female

DRUGS (4)
  1. BYETTA [Suspect]
     Indication: WEIGHT DECREASED
     Dosage: 5 UG, 2/D, SUBCYTANEOUS
     Route: 058
     Dates: start: 20070409
  2. EXENATIDE 5MCG PEN, DISPOSABLE DEVICE (EXENATIDE PEN (5MCG)) PEN, DISP [Concomitant]
  3. GLUCOPAHGE (METFORMIN) [Concomitant]
  4. TRICOR [Concomitant]

REACTIONS (4)
  - ENERGY INCREASED [None]
  - MUSCULAR WEAKNESS [None]
  - MYALGIA [None]
  - WEIGHT DECREASED [None]
